FAERS Safety Report 20000121 (Version 5)
Quarter: 2021Q4

REPORT INFORMATION
  Report Type: Other
  Country: JP (occurrence: JP)
  Receive Date: 20211027
  Receipt Date: 20211227
  Transmission Date: 20220304
  Serious: Yes (Hospitalization, Other)
  Sender: FDA-Public Use
  Company Number: JP-CHUGAI-2021023314

PATIENT
  Age: 55 Year
  Sex: Female
  Weight: 53.1 kg

DRUGS (8)
  1. ATEZOLIZUMAB [Suspect]
     Active Substance: ATEZOLIZUMAB
     Indication: Lung adenocarcinoma
     Dosage: 1200 MILLIGRAM
     Route: 041
     Dates: start: 20211005
  2. BEVACIZUMAB [Suspect]
     Active Substance: BEVACIZUMAB
     Indication: Lung adenocarcinoma
     Dosage: 797 MILLIGRAM
     Route: 041
     Dates: start: 20211005
  3. CARBOPLATIN [Suspect]
     Active Substance: CARBOPLATIN
     Indication: Lung adenocarcinoma
     Dosage: 650 MILLIGRAM
     Route: 041
     Dates: start: 20201005
  4. PACLITAXEL [Suspect]
     Active Substance: PACLITAXEL
     Indication: Lung adenocarcinoma
     Dosage: 261 MILLIGRAM, QD
     Route: 041
     Dates: start: 20201005, end: 20201005
  5. PACLITAXEL [Suspect]
     Active Substance: PACLITAXEL
     Dosage: 261.1 MILLIGRAM
     Route: 041
     Dates: start: 20211027
  6. CARBOPLATIN [Concomitant]
     Active Substance: CARBOPLATIN
     Indication: Lung adenocarcinoma
     Dosage: 650 MILLIGRAM
     Route: 041
     Dates: start: 20201005
  7. PACLITAXEL [Concomitant]
     Active Substance: PACLITAXEL
     Indication: Lung adenocarcinoma
     Dosage: 261 MILLIGRAM
     Route: 041
     Dates: start: 20201005
  8. PACLITAXEL [Concomitant]
     Active Substance: PACLITAXEL
     Dosage: 261.1 MILLIGRAM
     Route: 041
     Dates: start: 20211027

REACTIONS (13)
  - Pyrexia [Recovering/Resolving]
  - Rash [Recovering/Resolving]
  - Gamma-glutamyltransferase increased [Unknown]
  - Angular cheilitis [Recovering/Resolving]
  - Hypersensitivity [Recovering/Resolving]
  - White blood cell count decreased [Unknown]
  - Anaemia [Unknown]
  - Platelet count decreased [Unknown]
  - Aspartate aminotransferase increased [Unknown]
  - Alanine aminotransferase increased [Unknown]
  - Malaise [Recovering/Resolving]
  - Nausea [Recovering/Resolving]
  - Hypoxia [Unknown]

NARRATIVE: CASE EVENT DATE: 20211005
